FAERS Safety Report 6771593-4 (Version None)
Quarter: 2010Q2

REPORT INFORMATION
  Report Type: 
  Country: None (occurrence: None)
  Receive Date: 20100616
  Receipt Date: 20100603
  Transmission Date: 20101027
  Serious: Yes (Other)
  Sender: FDA-Public Use
  Company Number: PHHY2010VE37129

PATIENT
  Sex: Female

DRUGS (5)
  1. FEMARA [Suspect]
     Indication: BREAST CANCER
     Dosage: 2.5 MG, UNK
     Route: 048
     Dates: start: 20090601
  2. CALCIBON [Concomitant]
     Dosage: (950MG CALCIUM CITRATE TETRAHYDRATE EQUIV. TO 200MG OF ELEMENTAL CALCIUM), UNK
  3. ANSILAN [Concomitant]
     Indication: ANXIETY
     Dosage: UNK
  4. NATRILIX [Concomitant]
     Dosage: UNK
  5. CHEMOTHERAPEUTICS NOS [Concomitant]
     Dosage: UNK

REACTIONS (4)
  - BLOOD CHOLESTEROL INCREASED [None]
  - BLOOD TRIGLYCERIDES INCREASED [None]
  - HYPERTENSION [None]
  - MAMMOPLASTY [None]
